FAERS Safety Report 10179994 (Version 2)
Quarter: 2014Q2

REPORT INFORMATION
  Report Type: Spontaneous
  Country: US (occurrence: US)
  Receive Date: 20140519
  Receipt Date: 20140519
  Transmission Date: 20141212
  Serious: Yes (Other)
  Sender: FDA-Public Use
  Company Number: US-BRISTOL-MYERS SQUIBB COMPANY-19782408

PATIENT
  Age: 51 Year
  Sex: Male

DRUGS (1)
  1. BARACLUDE TABS 1.0 MG [Suspect]
     Dosage: 1 TAB DAILY
     Route: 048
     Dates: start: 200812, end: 201312

REACTIONS (1)
  - Hepatitis B DNA assay positive [Unknown]
